FAERS Safety Report 8734109 (Version 3)
Quarter: 2012Q4

REPORT INFORMATION
  Report Type: Spontaneous
  Country: US (occurrence: None)
  Receive Date: 20120802
  Receipt Date: 20121003
  Transmission Date: 20130627
  Serious: Yes (Hospitalization, Other)
  Sender: FDA-Public Use
  Company Number: JPI-P-022801

PATIENT
  Age: 66 Year
  Sex: Female
  Weight: 99.79 kg

DRUGS (9)
  1. XYREM [Suspect]
     Indication: CATAPLEXY
     Route: 048
     Dates: start: 20111115
  2. XYREM [Suspect]
     Indication: CATAPLEXY
     Route: 048
  3. CARVEDILOL [Concomitant]
  4. LISINOPRIL [Concomitant]
  5. HYDROCHLOROTHIAZIDE [Concomitant]
  6. ASPIRIN [Concomitant]
  7. FUROSEMIDE [Concomitant]
  8. POTASSIUM [Concomitant]
  9. ACETAMINOPHEN [Concomitant]

REACTIONS (11)
  - Dyspnoea [None]
  - Atrial conduction time prolongation [None]
  - Heart rate increased [None]
  - Anxiety [None]
  - Insomnia [None]
  - Initial insomnia [None]
  - Dizziness [None]
  - Irritability [None]
  - Alopecia [None]
  - Fluid retention [None]
  - Weight decreased [None]
